FAERS Safety Report 16710382 (Version 4)
Quarter: 2020Q1

REPORT INFORMATION
  Report Type: Spontaneous
  Country: PR (occurrence: PR)
  Receive Date: 20190816
  Receipt Date: 20200121
  Transmission Date: 20200409
  Serious: No
  Sender: FDA-Public Use
  Company Number: PR-PFIZER INC-2019349822

PATIENT
  Age: 53 Year
  Sex: Female
  Weight: 83 kg

DRUGS (4)
  1. IBRANCE [Suspect]
     Active Substance: PALBOCICLIB
     Indication: BREAST CANCER FEMALE
     Dosage: 125 MG, CYCLIC [1 CAPSULE DAILY FOR 21 DAYS AND 7 DAYS OFF]
     Route: 048
     Dates: start: 20190422, end: 2019
  2. IBRANCE [Suspect]
     Active Substance: PALBOCICLIB
     Dosage: 100 MG, CYCLIC (DAILY FOR 21 DAYS ON, 7 DAYS OFF)
     Route: 048
     Dates: start: 20190711
  3. IBRANCE [Suspect]
     Active Substance: PALBOCICLIB
     Dosage: 100 MG, CYCLIC (DAILY FOR 21 DAYS ON, 7 DAYS OFF)
     Route: 048
     Dates: start: 20190711
  4. IBRANCE [Suspect]
     Active Substance: PALBOCICLIB
     Dosage: 125 MG, CYCLIC (1 CAPSULE DAILY ON 21 DAYS AND OFF 7 DAYS )
     Route: 048
     Dates: start: 20190422, end: 2019

REACTIONS (3)
  - Pain in extremity [Not Recovered/Not Resolved]
  - White blood cell count decreased [Unknown]
  - Immune system disorder [Unknown]

NARRATIVE: CASE EVENT DATE: 20190812
